FAERS Safety Report 6197654-9 (Version None)
Quarter: 2009Q2

REPORT INFORMATION
  Report Type: 
  Country: None (occurrence: None)
  Receive Date: 20090521
  Receipt Date: 20090518
  Transmission Date: 20091009
  Serious: Yes (Other)
  Sender: FDA-Public Use
  Company Number: CH-BRISTOL-MYERS SQUIBB COMPANY-14629034

PATIENT

DRUGS (1)
  1. IXABEPILONE [Suspect]
     Indication: BREAST CANCER
     Dosage: INITIAL DOSE 10MG GIVEN.
     Route: 042
     Dates: start: 20090515, end: 20090515

REACTIONS (1)
  - DEAFNESS BILATERAL [None]
